FAERS Safety Report 9338818 (Version 1)
Quarter: 2013Q2

REPORT INFORMATION
  Report Type: Spontaneous
  Country: US (occurrence: None)
  Receive Date: 20130605
  Receipt Date: 20130605
  Transmission Date: 20140414
  Serious: Yes (Other)
  Sender: FDA-Public Use
  Company Number: None

PATIENT
  Age: 48 Year
  Sex: Male
  Weight: 105.24 kg

DRUGS (2)
  1. DESMOPRESSIN [Suspect]
     Indication: HYPOPITUITARISM
     Dosage: ONE SQUIRT IN EACH NOSTRIL
     Route: 045
  2. DESMOPRESSIN [Suspect]
     Indication: DIABETES INSIPIDUS
     Dosage: ONE SQUIRT IN EACH NOSTRIL
     Route: 045

REACTIONS (1)
  - Product tampering [None]
